FAERS Safety Report 12470909 (Version 1)
Quarter: 2016Q2

REPORT INFORMATION
  Report Type: Spontaneous
  Country: BR (occurrence: None)
  Receive Date: 20160615
  Receipt Date: 20160615
  Transmission Date: 20160815
  Serious: Yes (Other)
  Sender: FDA-Public Use
  Company Number: None

PATIENT
  Age: 16 Month
  Sex: Female
  Weight: 10.5 kg

DRUGS (2)
  1. VITAMIN D [Concomitant]
     Active Substance: CHOLECALCIFEROL
  2. SINGULAIR [Suspect]
     Active Substance: MONTELUKAST SODIUM
     Indication: COUGH
     Route: 048
     Dates: start: 20160529, end: 20160610

REACTIONS (6)
  - Insomnia [None]
  - Mood altered [None]
  - Decreased appetite [None]
  - Aggression [None]
  - Anxiety [None]
  - Excessive eye blinking [None]

NARRATIVE: CASE EVENT DATE: 20160610
